FAERS Safety Report 8354074-6 (Version None)
Quarter: 2012Q2

REPORT INFORMATION
  Report Type: 
  Country: None (occurrence: None)
  Receive Date: 20120511
  Receipt Date: 20120504
  Transmission Date: 20120825
  Serious: Yes (Hospitalization)
  Sender: FDA-Public Use
  Company Number: US-AMGEN-USASP2012028333

PATIENT
  Age: 61 Year
  Sex: Female

DRUGS (1)
  1. ENBREL [Suspect]
     Indication: RHEUMATOID ARTHRITIS
     Dosage: 50 MG, QWK
     Dates: start: 20080101, end: 20090301

REACTIONS (5)
  - ARTHRALGIA [None]
  - PAIN [None]
  - UTERINE CANCER [None]
  - POST PROCEDURAL HAEMORRHAGE [None]
  - FINGER DEFORMITY [None]
